FAERS Safety Report 21342777 (Version 1)
Quarter: 2022Q3

REPORT INFORMATION
  Report Type: Spontaneous
  Country: IN (occurrence: IN)
  Receive Date: 20220916
  Receipt Date: 20220916
  Transmission Date: 20221026
  Serious: Yes (Hospitalization)
  Sender: FDA-Public Use
  Company Number: IN-MYLANLABS-2022M1093683

PATIENT
  Age: 45 Year
  Sex: Female

DRUGS (7)
  1. DOCETAXEL [Suspect]
     Active Substance: DOCETAXEL
     Indication: Leiomyosarcoma
     Dosage: 75 MILLIGRAM/SQ. METER, CYCLE (RECEIVED ON DAY 1, EVERY 3 WEEKS)
     Route: 065
  2. ETOPOSIDE [Suspect]
     Active Substance: ETOPOSIDE
     Indication: Leiomyosarcoma
     Dosage: 100 MILLIGRAM/SQ. METER, CYCLE (VAC/IE REGIMEN; RECEIVED ON DAYS 1 TO 3, EVERY 3 WEEKS)
     Route: 065
  3. GEMCITABINE [Suspect]
     Active Substance: GEMCITABINE
     Indication: Leiomyosarcoma
     Dosage: 1000 MILLIGRAM/SQ. METER, CYCLE (RECEIVED ON DAYS 1 AND 8, EVERY 3 WEEKS)
     Route: 065
  4. CYCLOPHOSPHAMIDE [Suspect]
     Active Substance: CYCLOPHOSPHAMIDE
     Indication: Leiomyosarcoma
     Dosage: 1200 MILLIGRAM/SQ. METER, CYCLE (VAC/IE REGIMEN; RECEIVED ON DAY 1, EVERY 3 WEEKS)
     Route: 042
  5. ADRIAMYCIN [Suspect]
     Active Substance: DOXORUBICIN HYDROCHLORIDE
     Indication: Leiomyosarcoma
     Dosage: 75 MILLIGRAM/SQ. METER, CYCLE (VAC/IE REGIMEN; RECEIVED ON DAY 1, EVERY 3 WEEKS)
     Route: 065
  6. IFOSFAMIDE [Suspect]
     Active Substance: IFOSFAMIDE
     Indication: Leiomyosarcoma
     Dosage: UNK, CYCLE (DOSE: 1.8 G/M2 ; VAC/IE REGIMEN; RECEIVED ON DAYS 1 TO 3, EVERY 3 WEEKS))
     Route: 065
  7. VINCRISTINE [Suspect]
     Active Substance: VINCRISTINE
     Indication: Leiomyosarcoma
     Dosage: 1.4 MILLIGRAM/SQ. METER, CYCLE (VAC/IE REGIMEN; RECEIVED ON DAY 1, EVERY 3 WEEKS)
     Route: 065

REACTIONS (2)
  - Drug ineffective [Unknown]
  - Disease progression [Unknown]
